FAERS Safety Report 7039022-3 (Version None)
Quarter: 2010Q4

REPORT INFORMATION
  Report Type: 
  Country: None (occurrence: None)
  Receive Date: 20101012
  Receipt Date: 20101006
  Transmission Date: 20110411
  Serious: Yes (Other)
  Sender: FDA-Public Use
  Company Number: JP-WYE-H17874510

PATIENT
  Sex: Male
  Weight: 71 kg

DRUGS (1)
  1. ZOSYN [Suspect]
     Indication: PYELONEPHRITIS ACUTE
     Route: 041
     Dates: start: 20100924, end: 20100924

REACTIONS (4)
  - DYSPHONIA [None]
  - FLUSHING [None]
  - HYPERSENSITIVITY [None]
  - OROPHARYNGEAL DISCOMFORT [None]
